FAERS Safety Report 7374408-9 (Version None)
Quarter: 2011Q1

REPORT INFORMATION
  Report Type: 
  Country: None (occurrence: None)
  Receive Date: 20110325
  Receipt Date: 20110322
  Transmission Date: 20110831
  Serious: Yes (Other)
  Sender: FDA-Public Use
  Company Number: US-PFIZER INC-2011031633

PATIENT
  Sex: Female
  Weight: 83.9 kg

DRUGS (8)
  1. NEURONTIN [Interacting]
     Dosage: UNK
  2. NEURONTIN [Interacting]
     Dosage: 100 MG, THREE OR FIVE TIMES A DAY
     Route: 048
  3. PREDNISONE [Concomitant]
     Indication: RHEUMATOID ARTHRITIS
     Dosage: UNK
  4. ORENCIA [Interacting]
     Indication: RHEUMATOID ARTHRITIS
     Dosage: UNK
     Dates: start: 20100801
  5. ORENCIA [Interacting]
     Dosage: UNK
  6. XANAX [Concomitant]
     Indication: PSYCHOMOTOR HYPERACTIVITY
     Dosage: UNK
  7. NORCO [Concomitant]
     Dosage: 10/325 MG, UNKNOWN FREQUENCY
     Route: 048
  8. NEURONTIN [Suspect]
     Indication: NERVOUS SYSTEM DISORDER
     Dosage: 300 MG, FOUR OR FIVE TIMES A DAY
     Route: 048
     Dates: start: 20080101

REACTIONS (13)
  - PRURITUS GENERALISED [None]
  - FATIGUE [None]
  - AMNESIA [None]
  - WEIGHT INCREASED [None]
  - INCREASED APPETITE [None]
  - NERVOUSNESS [None]
  - REGURGITATION [None]
  - GAIT DISTURBANCE [None]
  - TREMOR [None]
  - OEDEMA PERIPHERAL [None]
  - RASH [None]
  - DRUG INTERACTION [None]
  - SALIVARY HYPERSECRETION [None]
